FAERS Safety Report 5243937-6 (Version None)
Quarter: 2007Q1

REPORT INFORMATION
  Report Type: 
  Country: None (occurrence: None)
  Receive Date: 20070220
  Receipt Date: 20070220
  Transmission Date: 20070707
  Serious: Yes (Death)
  Sender: FDA-Public Use
  Company Number: None

PATIENT
  Sex: Female
  Weight: 136.0791 kg

DRUGS (2)
  1. CARISOPRODOL [Suspect]
     Indication: PAIN
     Dosage: UNKNOWN
  2. DIAZEPAM [Suspect]

REACTIONS (2)
  - DRUG TOXICITY [None]
  - RESPIRATORY ARREST [None]
